FAERS Safety Report 6612501-6 (Version None)
Quarter: 2010Q1

REPORT INFORMATION
  Report Type: 
  Country: None (occurrence: None)
  Receive Date: 20100223
  Receipt Date: 20100211
  Transmission Date: 20100710
  Serious: Yes (Other)
  Sender: FDA-Public Use
  Company Number: 2010SP008579

PATIENT
  Age: 35 Year
  Sex: Female

DRUGS (6)
  1. REMERON [Suspect]
     Indication: DEPRESSION
  2. ZOLOFT [Concomitant]
  3. LITHITUM [Concomitant]
  4. TRIONETTA [Concomitant]
  5. KESTINE [Concomitant]
  6. AERIUS [Concomitant]

REACTIONS (8)
  - ANGIOEDEMA [None]
  - BURNING SENSATION [None]
  - ERYTHEMA [None]
  - HEPATIC STEATOSIS [None]
  - OEDEMA PERIPHERAL [None]
  - PAIN IN EXTREMITY [None]
  - PRURITUS [None]
  - URTICARIA [None]
